FAERS Safety Report 19097978 (Version 4)
Quarter: 2021Q2

REPORT INFORMATION
  Report Type: Spontaneous
  Country: PL (occurrence: PL)
  Receive Date: 20210406
  Receipt Date: 20210609
  Transmission Date: 20210717
  Serious: Yes (Death, Hospitalization, Other)
  Sender: FDA-Public Use
  Company Number: NVSC2021PL077331

PATIENT
  Age: 64 Year
  Sex: Male
  Weight: 116 kg

DRUGS (1)
  1. TACROLIMUS. [Suspect]
     Active Substance: TACROLIMUS
     Indication: RENAL TRANSPLANT
     Dosage: 1.5 MG,QD
     Route: 048
     Dates: start: 20200929

REACTIONS (3)
  - Respiratory tract infection [Recovered/Resolved with Sequelae]
  - COVID-19 [Fatal]
  - Respiratory tract infection [Recovered/Resolved with Sequelae]

NARRATIVE: CASE EVENT DATE: 202101
